FAERS Safety Report 7724486-X (Version None)
Quarter: 2011Q3

REPORT INFORMATION
  Report Type: 
  Country: None (occurrence: None)
  Receive Date: 20110901
  Receipt Date: 20110824
  Transmission Date: 20111222
  Serious: Yes (Other)
  Sender: FDA-Public Use
  Company Number: US-GLAXOSMITHKLINE-A0943040A

PATIENT
  Sex: Female
  Weight: 61.1 kg

DRUGS (8)
  1. VENTOLIN HFA [Concomitant]
     Indication: CHRONIC OBSTRUCTIVE PULMONARY DISEASE
     Route: 065
  2. AMLODIPINE [Concomitant]
     Indication: HYPERTENSION
     Dosage: 5MG UNKNOWN
  3. PREDNISONE [Concomitant]
     Indication: CHRONIC OBSTRUCTIVE PULMONARY DISEASE
     Route: 065
  4. ISOSORBIDE DINITRATE [Concomitant]
     Dosage: 15MGD PER DAY
  5. CHANTIX [Suspect]
     Indication: EX-TOBACCO USER
     Route: 048
     Dates: start: 20110601
  6. WELLBUTRIN [Suspect]
     Indication: EX-TOBACCO USER
     Route: 048
     Dates: start: 20110601, end: 20110601
  7. SPIRIVA [Concomitant]
     Indication: CHRONIC OBSTRUCTIVE PULMONARY DISEASE
  8. ADVAIR DISKUS 100/50 [Concomitant]
     Indication: CHRONIC OBSTRUCTIVE PULMONARY DISEASE

REACTIONS (8)
  - NON-CARDIAC CHEST PAIN [None]
  - ANGINA PECTORIS [None]
  - COUGH [None]
  - CONFUSIONAL STATE [None]
  - STUBBORNNESS [None]
  - ANXIETY [None]
  - ASTHENIA [None]
  - RETCHING [None]
